FAERS Safety Report 25599640 (Version 1)
Quarter: 2025Q3

REPORT INFORMATION
  Report Type: Spontaneous
  Country: EU (occurrence: EU)
  Receive Date: 20250724
  Receipt Date: 20250724
  Transmission Date: 20251020
  Serious: Yes (Other)
  Sender: CHEPLAPHARM
  Company Number: None

PATIENT
  Age: 72 Year
  Sex: Female

DRUGS (8)
  1. OLANZAPINE [Interacting]
     Active Substance: OLANZAPINE
     Indication: Bipolar disorder
     Route: 048
     Dates: end: 20250624
  2. CYAMEMAZINE [Interacting]
     Active Substance: CYAMEMAZINE
     Indication: Bipolar disorder
     Dosage: DOSE INCREASE IN 04/2025?DAILY DOSE: 60 DROP
     Route: 048
     Dates: start: 202504, end: 20250616
  3. MIRTAZAPINE [Interacting]
     Active Substance: MIRTAZAPINE
     Indication: Bipolar disorder
     Route: 048
     Dates: end: 20250616
  4. OXAZEPAM [Interacting]
     Active Substance: OXAZEPAM
     Indication: Bipolar disorder
     Dosage: DAILY DOSE: 60 MILLIGRAM
     Route: 048
  5. OXAZEPAM [Interacting]
     Active Substance: OXAZEPAM
     Indication: Bipolar disorder
     Route: 048
  6. GABAPENTIN [Interacting]
     Active Substance: GABAPENTIN
     Indication: Bipolar disorder
     Dosage: DAILY DOSE: 900 MILLIGRAM
     Route: 048
  7. Selexid [Concomitant]
     Dates: end: 20250616
  8. ALFUZOSIN [Concomitant]
     Active Substance: ALFUZOSIN
     Dates: start: 20250616

REACTIONS (12)
  - Urinary retention [Recovering/Resolving]
  - Disorientation [Recovering/Resolving]
  - Enterococcal infection [Unknown]
  - Renal atrophy [Unknown]
  - Dysuria [Unknown]
  - Pollakiuria [Unknown]
  - General physical health deterioration [Unknown]
  - Hiatus hernia [Unknown]
  - Alanine aminotransferase increased [Unknown]
  - Leukocyturia [Unknown]
  - Haematuria [Unknown]
  - Hyponatraemia [Unknown]

NARRATIVE: CASE EVENT DATE: 20250601
